APPROVED DRUG PRODUCT: NYMALIZE
Active Ingredient: NIMODIPINE
Strength: 6MG/ML
Dosage Form/Route: SOLUTION;ORAL
Application: N203340 | Product #002 | TE Code: AB
Applicant: AZURITY PHARMACEUTICALS INC
Approved: Apr 8, 2020 | RLD: Yes | RS: Yes | Type: RX

PATENTS:
Patent 11413277 | Expires: Apr 16, 2038
Patent 12186308 | Expires: Apr 16, 2038
Patent 10342787 | Expires: Apr 16, 2038
Patent 10576070 | Expires: Apr 16, 2038
Patent 11207306 | Expires: Apr 16, 2038
Patent 11806338 | Expires: Apr 16, 2038